FAERS Safety Report 25790900 (Version 1)
Quarter: 2025Q3

REPORT INFORMATION
  Report Type: Other
  Country: CA (occurrence: CA)
  Receive Date: 20250911
  Receipt Date: 20250911
  Transmission Date: 20251020
  Serious: Yes (Other)
  Sender: PFIZER
  Company Number: CA-PFIZER INC-202500179407

PATIENT
  Sex: Male

DRUGS (4)
  1. FILGRASTIM [Suspect]
     Active Substance: FILGRASTIM
     Indication: Haematopoietic stem cell mobilisation
     Route: 065
  2. IRBESARTAN [Concomitant]
     Active Substance: IRBESARTAN
  3. LOSARTAN [Concomitant]
     Active Substance: LOSARTAN
  4. MELPHALAN [Concomitant]
     Active Substance: MELPHALAN
     Route: 040

REACTIONS (10)
  - Antibody test positive [Recovered/Resolved]
  - Atrial fibrillation [Recovered/Resolved]
  - Atrial thrombosis [Recovered/Resolved]
  - Blood pressure diastolic decreased [Recovered/Resolved]
  - Blood pressure systolic decreased [Recovered/Resolved]
  - Cardiac disorder [Recovered/Resolved]
  - Globotriaosylceramide increased [Recovered/Resolved]
  - Glomerular filtration rate decreased [Recovered/Resolved]
  - Myocardial fibrosis [Recovered/Resolved]
  - Troponin increased [Recovered/Resolved]
